FAERS Safety Report 6253587-0 (Version None)
Quarter: 2009Q2

REPORT INFORMATION
  Report Type: 
  Country: None (occurrence: None)
  Receive Date: 20090630
  Receipt Date: 20090625
  Transmission Date: 20091009
  Serious: Yes (Death)
  Sender: FDA-Public Use
  Company Number: 2009AL004207

PATIENT

DRUGS (1)
  1. DIGOXIN [Suspect]
     Dosage: PO
     Route: 048

REACTIONS (6)
  - ECONOMIC PROBLEM [None]
  - FAMILY STRESS [None]
  - PAIN [None]
  - SOCIAL PROBLEM [None]
  - SURGERY [None]
  - THERAPEUTIC AGENT TOXICITY [None]
